FAERS Safety Report 9485215 (Version 1)
Quarter: 2013Q3

REPORT INFORMATION
  Report Type: Spontaneous
  Country: SE (occurrence: SE)
  Receive Date: 20130828
  Receipt Date: 20130828
  Transmission Date: 20140515
  Serious: Yes (Hospitalization)
  Sender: FDA-Public Use
  Company Number: SE-MYLANLABS-2013S1018773

PATIENT
  Age: 60 Year
  Sex: Female
  Weight: 77 kg

DRUGS (12)
  1. VALACICLOVIR [Suspect]
     Indication: HERPES VIRUS INFECTION
     Dosage: 6G DAILY
     Route: 048
  2. AMITRIPTYLINE [Concomitant]
     Dosage: 50MG 1 X 1
     Route: 065
  3. CALCIUM D3                         /01483701/ [Concomitant]
     Dosage: 1 X 2
     Route: 065
  4. ENALAPRIL [Concomitant]
     Dosage: 10MG 1 X 1
     Route: 065
  5. GABAPENTIN [Concomitant]
     Dosage: 600MG 1 X 3
     Route: 065
  6. METOPROLOL [Concomitant]
     Dosage: 100MG 1 X 1
     Route: 065
  7. BACLOFEN [Concomitant]
     Dosage: 10MG 1 + 2 + 1
     Route: 065
  8. METHENAMINE [Concomitant]
     Dosage: 1G 1 X 3
     Route: 065
  9. FUROSEMIDE [Concomitant]
     Dosage: 80MG 1 X 1
     Route: 065
  10. VENLAFAXINE [Concomitant]
     Dosage: 1 X 2
     Route: 065
  11. MONTELUKAST [Concomitant]
     Route: 055
  12. FLUTICASONE PROPIONATE W/SALMETEROL [Concomitant]
     Route: 055

REACTIONS (11)
  - Somnolence [Recovered/Resolved]
  - Musculoskeletal stiffness [Unknown]
  - Muscular weakness [Unknown]
  - Speech disorder [Recovered/Resolved]
  - Dysstasia [Unknown]
  - Renal impairment [Recovered/Resolved]
  - Neurological symptom [Recovering/Resolving]
  - Toxicity to various agents [Unknown]
  - Headache [Unknown]
  - Vomiting [Unknown]
  - Nausea [Unknown]
